FAERS Safety Report 5758181-3 (Version None)
Quarter: 2008Q2

REPORT INFORMATION
  Report Type: 
  Country: None (occurrence: None)
  Receive Date: 20080604
  Receipt Date: 20080529
  Transmission Date: 20081010
  Serious: Yes (Hospitalization)
  Sender: FDA-Public Use
  Company Number: GB-RANBAXY-2008RR-15241

PATIENT

DRUGS (4)
  1. SIMVASTATIN [Suspect]
     Dosage: 20 MG, QD
     Route: 048
  2. SIMVASTATIN [Suspect]
     Dosage: 40 MG, QD
     Route: 048
  3. ASPIRIN [Suspect]
     Indication: ANTICOAGULANT THERAPY
     Dosage: UNK
     Route: 065
  4. CLOPIDOGREL [Suspect]
     Indication: ANTICOAGULANT THERAPY
     Route: 065

REACTIONS (5)
  - CARDIAC DISORDER [None]
  - COMPARTMENT SYNDROME [None]
  - ERYTHEMA NODOSUM [None]
  - HAEMORRHAGE [None]
  - MYOSITIS [None]
